FAERS Safety Report 6006384-5 (Version None)
Quarter: 2008Q4

REPORT INFORMATION
  Report Type: 
  Country: None (occurrence: None)
  Receive Date: 20081217
  Receipt Date: 20081206
  Transmission Date: 20090506
  Serious: Yes (Other)
  Sender: FDA-Public Use
  Company Number: KR-BAYER-200832687GPV

PATIENT
  Age: 43 Year
  Sex: Male

DRUGS (4)
  1. ASPIRIN [Suspect]
     Indication: PLATELET AGGREGATION INHIBITION
     Route: 065
  2. CILOSTAZOL [Suspect]
     Indication: PLATELET AGGREGATION INHIBITION
     Route: 065
  3. CLOPIDOGREL [Suspect]
     Indication: PLATELET AGGREGATION INHIBITION
     Route: 065
  4. SIROLIMUS [Concomitant]
     Indication: DRUG USE FOR UNKNOWN INDICATION
     Route: 065

REACTIONS (5)
  - BLOOD PRESSURE SYSTOLIC DECREASED [None]
  - ELECTROCARDIOGRAM ST SEGMENT ELEVATION [None]
  - FALL [None]
  - STUPOR [None]
  - THROMBOSIS IN DEVICE [None]
